FAERS Safety Report 25873197 (Version 2)
Quarter: 2025Q4

REPORT INFORMATION
  Report Type: Spontaneous
  Country: EU (occurrence: EU)
  Receive Date: 20251002
  Receipt Date: 20251003
  Transmission Date: 20260117
  Serious: Yes (Other)
  Sender: PFIZER
  Company Number: EU-MLMSERVICE-20250922-PI653150-00059-1

PATIENT
  Age: 58 Year
  Sex: Male

DRUGS (6)
  1. METHYLPREDNISOLONE [Suspect]
     Active Substance: METHYLPREDNISOLONE
     Indication: Hypersensitivity pneumonitis
     Dosage: 8 MG, 1X/DAY (FOR THE PAST 4 YEARS)
  2. AZATHIOPRINE [Suspect]
     Active Substance: AZATHIOPRINE
     Indication: Hypersensitivity pneumonitis
     Dosage: 100 MG, 1X/DAY (FOR THE PAST 4 YEARS)
  3. AMPHOTERICIN B [Concomitant]
     Active Substance: AMPHOTERICIN B
     Indication: Hypersensitivity pneumonitis
     Dosage: ,100 MG, DAILY,FOR 21 DAYS
  4. FLUCONAZOLE [Concomitant]
     Active Substance: FLUCONAZOLE
     Indication: Hypersensitivity pneumonitis
     Dosage: 400 MG,FOR 6 MONTHS
     Route: 048
  5. SULFAMETHOXAZOLE\TRIMETHOPRIM [Concomitant]
     Active Substance: SULFAMETHOXAZOLE\TRIMETHOPRIM
     Indication: Hypersensitivity pneumonitis
     Dosage: 480 MG, DAILY
  6. ACITRETIN [Concomitant]
     Active Substance: ACITRETIN
     Indication: Hypersensitivity pneumonitis
     Dosage: 25 MG, DAILY

REACTIONS (3)
  - Disseminated cryptococcosis [Recovered/Resolved]
  - Pneumonia cryptococcal [Recovered/Resolved]
  - Anaemia megaloblastic [Recovered/Resolved]
